FAERS Safety Report 4539932-2 (Version None)
Quarter: 2004Q4

REPORT INFORMATION
  Report Type: 
  Country: None (occurrence: None)
  Receive Date: 20041223
  Receipt Date: 20041217
  Transmission Date: 20050328
  Serious: Yes (Disabling)
  Sender: FDA-Public Use
  Company Number: 200410648BFR

PATIENT
  Age: 43 Year
  Sex: Male

DRUGS (8)
  1. STALTOR (CERIVASTATIN) [Suspect]
     Dosage: 0.3 MG, TOTAL DAILY, ORAL
     Route: 048
     Dates: start: 19990101, end: 20010801
  2. PREVISCAN [Concomitant]
  3. MOPRAL [Concomitant]
  4. ZESTRIL [Concomitant]
  5. TENORMIN [Concomitant]
  6. TAHOR [Concomitant]
  7. ZOCOR [Concomitant]
  8. LESCOL [Concomitant]

REACTIONS (5)
  - HEADACHE [None]
  - HEPATITIS [None]
  - MUSCLE CRAMP [None]
  - MUSCULOSKELETAL STIFFNESS [None]
  - WEIGHT DECREASED [None]
